FAERS Safety Report 7829764-1 (Version None)
Quarter: 2011Q4

REPORT INFORMATION
  Report Type: 
  Country: None (occurrence: None)
  Receive Date: 20111020
  Receipt Date: 20111020
  Transmission Date: 20120403
  Serious: Yes (Hospitalization)
  Sender: FDA-Public Use
  Company Number: None

PATIENT
  Sex: Female
  Weight: 63.5036 kg

DRUGS (1)
  1. CIPROFLOXACIN [Suspect]
     Indication: CYSTITIS
     Dosage: 500 MG 2 X DAILY
     Dates: start: 20110603, end: 20110611

REACTIONS (3)
  - TENDONITIS [None]
  - PARAESTHESIA [None]
  - HYPOAESTHESIA [None]
